FAERS Safety Report 8968639 (Version 1)
Quarter: 2012Q4

REPORT INFORMATION
  Report Type: 
  Country: CN (occurrence: CN)
  Receive Date: 20121217
  Receipt Date: 20121217
  Transmission Date: 20130627
  Serious: Yes (Death, Other)
  Sender: FDA-Public Use
  Company Number: CN-ROCHE-1169954

PATIENT
  Sex: Male

DRUGS (1)
  1. ROCEPHIN [Suspect]
     Indication: ANTIBIOTIC PROPHYLAXIS
     Route: 041

REACTIONS (2)
  - Disease progression [Fatal]
  - Urticaria [Recovering/Resolving]
